FAERS Safety Report 6841393-5 (Version None)
Quarter: 2010Q3

REPORT INFORMATION
  Report Type: 
  Country: None (occurrence: None)
  Receive Date: 20100709
  Receipt Date: 20100626
  Transmission Date: 20110219
  Serious: Yes (Other)
  Sender: FDA-Public Use
  Company Number: CTI_01209_2010

PATIENT
  Sex: Female

DRUGS (2)
  1. ZYFLO [Suspect]
     Indication: PRODUCT USED FOR UNKNOWN INDICATION
     Dosage: (DF)
  2. BENADRYL [Suspect]
     Indication: HYPERSENSITIVITY
     Dosage: (LARGE DOSE)
     Dates: start: 20100419, end: 20100419

REACTIONS (2)
  - DRUG HYPERSENSITIVITY [None]
  - TACHYCARDIA [None]
